FAERS Safety Report 5857318-5 (Version None)
Quarter: 2008Q3

REPORT INFORMATION
  Report Type: 
  Country: None (occurrence: None)
  Receive Date: 20080826
  Receipt Date: 20080822
  Transmission Date: 20090109
  Serious: Yes (Hospitalization)
  Sender: FDA-Public Use
  Company Number: IT-SP-2008-02704

PATIENT
  Age: 72 Year
  Sex: Male

DRUGS (10)
  1. IMMUCYST [Suspect]
     Indication: BLADDER CANCER
     Route: 043
     Dates: start: 20080814, end: 20080814
  2. ALLOPURINOL [Concomitant]
  3. DISODIUM CARBONATE [Concomitant]
  4. RAMIPRIL [Concomitant]
  5. ASPIRIN [Concomitant]
  6. SIVASTIN [Concomitant]
  7. IRBESARTAN [Concomitant]
  8. LASIX [Concomitant]
  9. IPERTEN [Concomitant]
  10. PANTECTA [Concomitant]

REACTIONS (2)
  - JAUNDICE CHOLESTATIC [None]
  - RENAL FAILURE ACUTE [None]
